FAERS Safety Report 9948074 (Version 1)
Quarter: 2014Q1

REPORT INFORMATION
  Report Type: Report from Study
  Country: US (occurrence: US)
  Receive Date: 20140303
  Receipt Date: 20140303
  Transmission Date: 20141002
  Serious: No
  Sender: FDA-Public Use
  Company Number: US-ABBVIE-13P-163-1058843-00

PATIENT
  Age: 36 Year
  Sex: Female
  Weight: 47.67 kg

DRUGS (1)
  1. HUMIRA [Suspect]
     Indication: COLITIS ULCERATIVE
     Dates: start: 20130131

REACTIONS (2)
  - Nasal discharge discolouration [Not Recovered/Not Resolved]
  - Rhinorrhoea [Not Recovered/Not Resolved]
